FAERS Safety Report 7177482-8 (Version None)
Quarter: 2010Q4

REPORT INFORMATION
  Report Type: 
  Country: None (occurrence: None)
  Receive Date: 20101123
  Receipt Date: 20100824
  Transmission Date: 20110411
  Serious: No
  Sender: FDA-Public Use
  Company Number: 015000

PATIENT
  Sex: Female
  Weight: 59.9 kg

DRUGS (14)
  1. CIMZIA [Suspect]
     Indication: CROHN'S DISEASE
     Dosage: 400 MG 1X/MONTH SUBCUTANEOUS
     Route: 058
     Dates: start: 20090915, end: 20100804
  2. METHOTREXATE [Concomitant]
  3. CYMBALTA [Concomitant]
  4. UNIRETIC /01383501/ [Concomitant]
  5. ENTOCORT EC [Concomitant]
  6. ATIVAN [Concomitant]
  7. PERCOCET [Concomitant]
  8. LOVAZA [Concomitant]
  9. HYDROXYCHLOROQUINE [Concomitant]
  10. PHRENILIN [Concomitant]
  11. IMITREX [Concomitant]
  12. AMBIEN [Concomitant]
  13. PROMETHAZINE [Concomitant]
  14. ESTROVEN /02150801/ [Concomitant]

REACTIONS (8)
  - CONFUSIONAL STATE [None]
  - DEPRESSION [None]
  - FATIGUE [None]
  - INJECTION SITE SWELLING [None]
  - MALAISE [None]
  - PAIN [None]
  - STRESS [None]
  - SYSTEMIC LUPUS ERYTHEMATOSUS [None]
